FAERS Safety Report 11755664 (Version 1)
Quarter: 2015Q4

REPORT INFORMATION
  Report Type: Spontaneous
  Country: US (occurrence: US)
  Receive Date: 20151119
  Receipt Date: 20151119
  Transmission Date: 20160304
  Serious: No
  Sender: FDA-Public Use
  Company Number: US-TEVA-609985USA

PATIENT
  Age: 57 Year
  Sex: Male
  Weight: 97.61 kg

DRUGS (1)
  1. MODAFINIL. [Suspect]
     Active Substance: MODAFINIL
     Indication: SLEEP APNOEA SYNDROME
     Route: 065
     Dates: start: 20151112, end: 20151112

REACTIONS (5)
  - Pharyngeal paraesthesia [Unknown]
  - Blood pressure increased [Unknown]
  - Paraesthesia oral [Unknown]
  - Malaise [Unknown]
  - Feeling jittery [Not Recovered/Not Resolved]

NARRATIVE: CASE EVENT DATE: 20151112
